FAERS Safety Report 5361574-X (Version None)
Quarter: 2007Q2

REPORT INFORMATION
  Report Type: 
  Country: None (occurrence: None)
  Receive Date: 20070619
  Receipt Date: 20070608
  Transmission Date: 20071010
  Serious: Yes (Other)
  Sender: FDA-Public Use
  Company Number: PHBS2007IN09685

PATIENT
  Age: 50 Year
  Sex: Male

DRUGS (4)
  1. IMATINIB MESYLATE [Suspect]
     Indication: CHRONIC MYELOID LEUKAEMIA
     Dosage: 400 MG/D
     Route: 065
  2. IMATINIB MESYLATE [Suspect]
     Dosage: 400 MG/D
     Route: 065
  3. HYDROXYUREA [Concomitant]
     Route: 065
  4. INTERFERON [Concomitant]
     Route: 065

REACTIONS (3)
  - OPTIC NEURITIS [None]
  - PUPILLARY REFLEX IMPAIRED [None]
  - VISUAL ACUITY REDUCED [None]
